FAERS Safety Report 5839102-1 (Version None)
Quarter: 2008Q3

REPORT INFORMATION
  Report Type: 
  Country: None (occurrence: None)
  Receive Date: 20080808
  Receipt Date: 20080801
  Transmission Date: 20090109
  Serious: Yes (Disabling)
  Sender: FDA-Public Use
  Company Number: US-GENENTECH-265652

PATIENT
  Sex: Male
  Weight: 101.59 kg

DRUGS (22)
  1. ERLOTINIB [Suspect]
     Indication: NON-SMALL CELL LUNG CANCER
     Dosage: 150 MG, QD
     Route: 048
     Dates: start: 20080105, end: 20080731
  2. AVASTIN [Suspect]
     Indication: NON-SMALL CELL LUNG CANCER
     Dosage: 1636 MG, Q3W
     Route: 042
     Dates: start: 20070928, end: 20080711
  3. CHEMOTHERAPY (UNK INGREDIENTS) [Suspect]
     Indication: NON-SMALL CELL LUNG CANCER
     Dosage: UNK
     Route: 042
     Dates: start: 20070928, end: 20081130
  4. LIPITOR [Concomitant]
     Indication: HYPERCHOLESTEROLAEMIA
  5. LOTREL [Concomitant]
     Indication: HYPERTENSION
  6. MOTRIN [Concomitant]
     Indication: PAIN
  7. VICODIN ES [Concomitant]
     Indication: PAIN
  8. GLUCOSAMINE [Concomitant]
     Indication: ARTHRITIS
  9. CHONDROITIN [Concomitant]
     Indication: ARTHRITIS
  10. DYAZIDE [Concomitant]
     Indication: HYPERTENSION
  11. PROTONIX [Concomitant]
     Indication: GASTROINTESTINAL DISORDER
  12. SENNA [Concomitant]
     Indication: DRUG USE FOR UNKNOWN INDICATION
  13. FLOMAX [Concomitant]
     Indication: PROSTATIC DISORDER
  14. OXYCONTIN [Concomitant]
     Indication: PAIN
  15. DEXAMETHASONE [Concomitant]
     Indication: DRUG USE FOR UNKNOWN INDICATION
     Dosage: 2 MG, QID
  16. XALATAN [Concomitant]
     Indication: GLAUCOMA
  17. LOVENOX [Concomitant]
     Indication: DEEP VEIN THROMBOSIS
  18. GLAUCOMA EYE DROPS (UNK INGREDIENTS) [Concomitant]
     Indication: GLAUCOMA
  19. LUMIGAN [Concomitant]
     Indication: DRUG USE FOR UNKNOWN INDICATION
  20. CELEXA [Concomitant]
     Indication: DEPRESSION
  21. ATIVAN [Concomitant]
     Indication: DRUG USE FOR UNKNOWN INDICATION
  22. COUMADIN [Concomitant]
     Indication: DRUG USE FOR UNKNOWN INDICATION

REACTIONS (1)
  - VISION BLURRED [None]
